FAERS Safety Report 16839041 (Version 1)
Quarter: 2019Q3

REPORT INFORMATION
  Report Type: Spontaneous
  Country: FI (occurrence: FI)
  Receive Date: 20190923
  Receipt Date: 20190923
  Transmission Date: 20191005
  Serious: Yes (Other)
  Sender: FDA-Public Use
  Company Number: FI-TEVA-2019-FI-1111679

PATIENT
  Age: 65 Year
  Sex: Female

DRUGS (3)
  1. DIAPAM [Concomitant]
     Indication: ANXIETY
     Dosage: WHEN NEEDED
     Route: 065
  2. BUSPIRON RATIOPHARM 5 MG [Suspect]
     Active Substance: BUSPIRONE HYDROCHLORIDE
     Indication: ANXIETY
     Dosage: 10 MILLIGRAM DAILY;
     Route: 048
     Dates: start: 20190906
  3. EMCONCOR 2,5 MG [Concomitant]
     Indication: CARDIAC DISORDER
     Dosage: 1 DOSAGE FORMS DAILY; 0,5 TABLET TWICE A DAY
     Route: 065

REACTIONS (4)
  - Arrhythmia [Recovered/Resolved]
  - Cold sweat [Recovered/Resolved]
  - Abdominal pain upper [Recovered/Resolved]
  - Nausea [Recovered/Resolved]

NARRATIVE: CASE EVENT DATE: 20190918
